FAERS Safety Report 24967511 (Version 1)
Quarter: 2025Q1

REPORT INFORMATION
  Report Type: Spontaneous
  Country: US (occurrence: US)
  Receive Date: 20250214
  Receipt Date: 20250214
  Transmission Date: 20250409
  Serious: No
  Sender: ROCHE
  Company Number: US-ROCHE-10000200741

PATIENT
  Age: 68 Year
  Sex: Female

DRUGS (7)
  1. VABYSMO [Suspect]
     Active Substance: FARICIMAB-SVOA
     Indication: Diabetic retinal oedema
     Route: 065
     Dates: start: 202411
  2. AVASTIN [Concomitant]
     Active Substance: BEVACIZUMAB
     Dates: start: 2020
  3. LUCENTIS [Concomitant]
     Active Substance: RANIBIZUMAB
  4. EYLEA [Concomitant]
     Active Substance: AFLIBERCEPT
  5. COSOPT [Concomitant]
     Active Substance: DORZOLAMIDE HYDROCHLORIDE\TIMOLOL MALEATE
  6. PRED FORTE [Concomitant]
     Active Substance: PREDNISOLONE ACETATE
  7. OZURDEX [Concomitant]
     Active Substance: DEXAMETHASONE

REACTIONS (1)
  - Uveitis [Unknown]
